FAERS Safety Report 15786802 (Version 2)
Quarter: 2019Q1

REPORT INFORMATION
  Report Type: Spontaneous
  Country: US (occurrence: US)
  Receive Date: 20190103
  Receipt Date: 20190124
  Transmission Date: 20190417
  Serious: Yes (Disabling)
  Sender: FDA-Public Use
  Company Number: US-OTSUKA-2018_020613

PATIENT
  Age: 32 Year
  Sex: Female

DRUGS (2)
  1. ABILIFY [Suspect]
     Active Substance: ARIPIPRAZOLE
     Dosage: 20 MG, QD
     Route: 065
     Dates: end: 20160401
  2. ABILIFY [Suspect]
     Active Substance: ARIPIPRAZOLE
     Indication: BIPOLAR DISORDER
     Dosage: 15 MG, QD
     Route: 065
     Dates: start: 20021115

REACTIONS (16)
  - Theft [Unknown]
  - Gambling disorder [Recovered/Resolved]
  - Condition aggravated [Recovered/Resolved]
  - Anhedonia [Unknown]
  - Eating disorder [Unknown]
  - Emotional distress [Unknown]
  - Compulsive shopping [Unknown]
  - Economic problem [Unknown]
  - Disability [Unknown]
  - Anxiety [Unknown]
  - Injury [Unknown]
  - Shoplifting [Unknown]
  - Compulsive sexual behaviour [Unknown]
  - Pain [Unknown]
  - Condition aggravated [Unknown]
  - Obsessive-compulsive disorder [Unknown]

NARRATIVE: CASE EVENT DATE: 20021213
